FAERS Safety Report 11152521 (Version 1)
Quarter: 2015Q2

REPORT INFORMATION
  Report Type: Spontaneous
  Country: US (occurrence: US)
  Receive Date: 20150601
  Receipt Date: 20150601
  Transmission Date: 20150821
  Serious: Yes (Death, Hospitalization, Other)
  Sender: FDA-Public Use
  Company Number: US-WATSON-2015-10641

PATIENT
  Age: 65 Year
  Sex: Male

DRUGS (4)
  1. METHOTREXATE (METHOTREXATE SODIUM) [Interacting]
     Active Substance: METHOTREXATE SODIUM
     Indication: PRODUCT USED FOR UNKNOWN INDICATION
     Dosage: UNK UNK, 1/WEEK
     Route: 042
  2. FUROSEMIDE (WATSON LABORATORIES) [Interacting]
     Active Substance: FUROSEMIDE
     Indication: PRODUCT USED FOR UNKNOWN INDICATION
     Dosage: UNK
     Route: 065
  3. OMEPRAZOLE (ACTAVIS LABORATORIES FL) [Suspect]
     Active Substance: OMEPRAZOLE
     Indication: PRODUCT USED FOR UNKNOWN INDICATION
     Dosage: UNK
     Route: 065
  4. MELOXICAM (UNKNOWN) [Suspect]
     Active Substance: MELOXICAM
     Indication: PRODUCT USED FOR UNKNOWN INDICATION
     Dosage: UNK
     Route: 065

REACTIONS (5)
  - Drug interaction [Not Recovered/Not Resolved]
  - Toxicity to various agents [Not Recovered/Not Resolved]
  - Pancytopenia [Not Recovered/Not Resolved]
  - Psoriasis [Not Recovered/Not Resolved]
  - Acute kidney injury [Fatal]
